FAERS Safety Report 6356576-0 (Version None)
Quarter: 2009Q3

REPORT INFORMATION
  Report Type: 
  Country: None (occurrence: None)
  Receive Date: 20090910
  Receipt Date: 20090910
  Transmission Date: 20100115
  Serious: Yes (Hospitalization)
  Sender: FDA-Public Use
  Company Number: None

PATIENT
  Age: 61 Year
  Sex: Male

DRUGS (5)
  1. CLOPIDOGREL [Suspect]
     Indication: THROMBOSIS PROPHYLAXIS
     Dosage: 75MG DAILY PO
     Route: 048
     Dates: start: 20090706, end: 20090818
  2. ASPIRIN [Concomitant]
  3. ATORVASTATIN [Concomitant]
  4. METOPROLOL TARTRATE [Concomitant]
  5. IBUPROFEN [Concomitant]

REACTIONS (9)
  - ASTHENIA [None]
  - CHILLS [None]
  - DIZZINESS [None]
  - FEBRILE NEUTROPENIA [None]
  - GINGIVAL PAIN [None]
  - HEADACHE [None]
  - HYPERHIDROSIS [None]
  - MYALGIA [None]
  - VISION BLURRED [None]
